FAERS Safety Report 4739867-6 (Version None)
Quarter: 2005Q3

REPORT INFORMATION
  Report Type: 
  Country: None (occurrence: None)
  Receive Date: 20050805
  Receipt Date: 20050725
  Transmission Date: 20060218
  Serious: Yes (Other)
  Sender: FDA-Public Use
  Company Number: 2005106060

PATIENT
  Age: 26 Year
  Sex: Female
  Weight: 65.7716 kg

DRUGS (3)
  1. DOXIDAN (CASANTHRANOL, DOCUSATE SODIUM) [Suspect]
     Indication: FAECES HARD
     Dosage: 2 TABLETS ONCE, ORAL
     Route: 048
     Dates: start: 20050725, end: 20050725
  2. AMOXICILLIN [Suspect]
     Indication: PHARYNGOLARYNGEAL PAIN
     Dosage: 2 TABLETS, DAILY, ORAL
     Route: 048
     Dates: start: 20050701
  3. VENLAFAXINE HCL [Concomitant]

REACTIONS (3)
  - DEHYDRATION [None]
  - LOSS OF CONSCIOUSNESS [None]
  - POOR QUALITY DRUG ADMINISTERED [None]
